FAERS Safety Report 5976244-4 (Version None)
Quarter: 2008Q4

REPORT INFORMATION
  Report Type: 
  Country: None (occurrence: None)
  Receive Date: 20081202
  Receipt Date: 20081121
  Transmission Date: 20090506
  Serious: Yes (Hospitalization)
  Sender: FDA-Public Use
  Company Number: RU-ROCHE-514663

PATIENT
  Sex: Female
  Weight: 70 kg

DRUGS (2)
  1. CAPECITABINE [Suspect]
     Route: 048
     Dates: start: 20070515
  2. DOCETAXEL [Suspect]
     Dosage: DOSAGE FORM REPORTED AS VIALS.
     Route: 042
     Dates: start: 20070515

REACTIONS (1)
  - CALCULUS URINARY [None]
